FAERS Safety Report 6170188-3 (Version None)
Quarter: 2009Q2

REPORT INFORMATION
  Report Type: 
  Country: None (occurrence: None)
  Receive Date: 20090427
  Receipt Date: 20090427
  Transmission Date: 20091009
  Serious: No
  Sender: FDA-Public Use
  Company Number: None

PATIENT
  Age: 4 Year
  Sex: Male
  Weight: 18 kg

DRUGS (7)
  1. NYSTATIN [Suspect]
     Indication: GASTROINTESTINAL CANDIDIASIS
     Dosage: 1/48 TABLESPOON 1-3 TIMES DAILY ORAL
     Route: 048
     Dates: start: 20090310, end: 20090319
  2. MILK THISTLE [Concomitant]
  3. TAURINE [Concomitant]
  4. CULTURELLE [Concomitant]
  5. KIRKMAN ENZYME [Concomitant]
  6. TRANSFER FACTOR 4LIFE [Concomitant]
  7. CALCIUM [Concomitant]

REACTIONS (4)
  - BLISTER [None]
  - CONTUSION [None]
  - SKIN HAEMORRHAGE [None]
  - VASCULAR RUPTURE [None]
